FAERS Safety Report 6782156 (Version 2)
Quarter: 2013Q1

REPORT INFORMATION
  Report Type: Spontaneous
  Country: US (occurrence: US)
  Receive Date: 20081008
  Receipt Date: 20130222
  Transmission Date: 20140127
  Serious: Yes (Other)
  Sender: FDA-Public Use
  Company Number: US-RB-004856-08

PATIENT
  Age: 1 Day
  Sex: Female
  Weight: 2 kg

DRUGS (3)
  1. SUBOXONE [Suspect]
     Indication: DRUG DEPENDENCE
     Route: 064
     Dates: start: 20071101, end: 20080114
  2. SUBUTEX [Suspect]
     Route: 064
     Dates: start: 20080115, end: 20080710
  3. SUBUTEX [Suspect]
     Indication: DRUG DEPENDENCE
     Route: 063
     Dates: start: 20080711

REACTIONS (6)
  - Foetal exposure during pregnancy [Recovered/Resolved]
  - Small for dates baby [Recovered/Resolved]
  - Low birth weight baby [Recovered/Resolved]
  - Exposure during breast feeding [Recovered/Resolved]
  - Irritability [Recovered/Resolved]
  - Jaundice neonatal [Recovered/Resolved]
